FAERS Safety Report 26005559 (Version 1)
Quarter: 2025Q4

REPORT INFORMATION
  Report Type: Report from Study
  Country: US (occurrence: US)
  Receive Date: 20251106
  Receipt Date: 20251106
  Transmission Date: 20260117
  Serious: Yes (Other)
  Sender: ALEXION PHARMACEUTICALS
  Company Number: US-ASTRAZENECA-202510NAM008591US

PATIENT
  Age: 71 Year
  Sex: Female

DRUGS (1)
  1. STRENSIQ [Suspect]
     Active Substance: ASFOTASE ALFA
     Indication: Phosphorus metabolism disorder
     Dosage: 1 MILLIGRAM/KILOGRAM, SIX TIMES/WEEK
     Route: 065

REACTIONS (6)
  - Hydronephrosis [Unknown]
  - Renal perivascular epithelioid cell tumour [Unknown]
  - Back pain [Unknown]
  - Arthralgia [Unknown]
  - Balance disorder [Unknown]
  - Stress fracture [Unknown]

NARRATIVE: CASE EVENT DATE: 20250317
